FAERS Safety Report 6093150-8 (Version None)
Quarter: 2009Q1

REPORT INFORMATION
  Report Type: 
  Country: None (occurrence: None)
  Receive Date: 20090226
  Receipt Date: 20090217
  Transmission Date: 20090719
  Serious: Yes (Other)
  Sender: FDA-Public Use
  Company Number: US-PFIZER INC-2009172894

PATIENT

DRUGS (1)
  1. NICOTROL [Suspect]

REACTIONS (6)
  - ABDOMINAL DISTENSION [None]
  - DEPENDENCE [None]
  - OSTEOPOROSIS [None]
  - SWELLING [None]
  - WEIGHT INCREASED [None]
  - WHEEZING [None]
